FAERS Safety Report 14778047 (Version 1)
Quarter: 2018Q2

REPORT INFORMATION
  Report Type: Spontaneous
  Country: US (occurrence: US)
  Receive Date: 20180419
  Receipt Date: 20180419
  Transmission Date: 20180711
  Serious: No
  Sender: FDA-Public Use
  Company Number: US-BAYER-2018-075152

PATIENT
  Age: 66 Year
  Sex: Female
  Weight: 87.98 kg

DRUGS (2)
  1. DEXAMETHASONE. [Concomitant]
     Active Substance: DEXAMETHASONE
  2. MIRALAX [Suspect]
     Active Substance: POLYETHYLENE GLYCOL 3350
     Indication: CONSTIPATION PROPHYLAXIS
     Dosage: UNK
     Route: 048
     Dates: start: 20180415, end: 20180415

REACTIONS (2)
  - Drug ineffective for unapproved indication [Unknown]
  - Off label use [None]

NARRATIVE: CASE EVENT DATE: 20180415
